FAERS Safety Report 9517047 (Version 2)
Quarter: 2013Q3

REPORT INFORMATION
  Report Type: Spontaneous
  Country: US (occurrence: US)
  Receive Date: 20130911
  Receipt Date: 20130930
  Transmission Date: 20140515
  Serious: No
  Sender: FDA-Public Use
  Company Number: US-PFIZER INC-2013261451

PATIENT
  Age: 10 Year
  Sex: Male

DRUGS (2)
  1. QUILLIVANT XR [Suspect]
     Indication: ATTENTION DEFICIT/HYPERACTIVITY DISORDER
     Dosage: 4 ML, 1X/DAY
     Route: 048
     Dates: start: 20130802, end: 20130909
  2. QUILLIVANT XR [Suspect]
     Indication: AUTISM

REACTIONS (3)
  - Drug administration error [Recovered/Resolved]
  - Drug ineffective [Unknown]
  - Off label use [Unknown]
